FAERS Safety Report 8033377-9 (Version None)
Quarter: 2012Q1

REPORT INFORMATION
  Report Type: 
  Country: None (occurrence: None)
  Receive Date: 20120110
  Receipt Date: 20120105
  Transmission Date: 20120608
  Serious: Yes (Death, Hospitalization)
  Sender: FDA-Public Use
  Company Number: PHHY2012AR001480

PATIENT
  Sex: Male

DRUGS (2)
  1. ENALAPRIL MALEATE [Concomitant]
     Dosage: UNK UKN, BID
  2. DIOVAN [Suspect]
     Indication: HYPERTENSION
     Dosage: 160 MG DAILY
     Dates: start: 20110901

REACTIONS (3)
  - SEPTIC SHOCK [None]
  - CEREBROVASCULAR ACCIDENT [None]
  - PNEUMONIA [None]
